FAERS Safety Report 9879993 (Version 3)
Quarter: 2014Q1

REPORT INFORMATION
  Report Type: Spontaneous
  Country: US (occurrence: US)
  Receive Date: 20140207
  Receipt Date: 20140219
  Transmission Date: 20141002
  Serious: Yes (Other)
  Sender: FDA-Public Use
  Company Number: US-BEH-2013036603

PATIENT
  Age: 6 Year
  Sex: Female

DRUGS (1)
  1. IVIG [Suspect]
     Indication: AXONAL NEUROPATHY

REACTIONS (1)
  - Drug effect incomplete [Recovered/Resolved]
